FAERS Safety Report 18071172 (Version 2)
Quarter: 2020Q3

REPORT INFORMATION
  Report Type: Spontaneous
  Country: US (occurrence: US)
  Receive Date: 20200727
  Receipt Date: 20200812
  Transmission Date: 20201103
  Serious: Yes (Death, Hospitalization, Other)
  Sender: FDA-Public Use
  Company Number: US-SA-2020SA192067

PATIENT

DRUGS (8)
  1. CLONAZEPAM. [Suspect]
     Active Substance: CLONAZEPAM
  2. PSEUDOEPHEDRINE HYDROCHLORIDE. [Suspect]
     Active Substance: PSEUDOEPHEDRINE HYDROCHLORIDE
  3. FLUVOXAMINE [Suspect]
     Active Substance: FLUVOXAMINE
  4. HYDROCODONE [Suspect]
     Active Substance: HYDROCODONE
  5. MIRTAZAPINE. [Suspect]
     Active Substance: MIRTAZAPINE
  6. CYCLOBENZAPRINE. [Suspect]
     Active Substance: CYCLOBENZAPRINE
  7. DOXYLAMINE SUCCINATE. [Suspect]
     Active Substance: DOXYLAMINE SUCCINATE
  8. DIPHENHYDRAMINE. [Suspect]
     Active Substance: DIPHENHYDRAMINE

REACTIONS (8)
  - Pulmonary congestion [Fatal]
  - Toxicity to various agents [Fatal]
  - Lung disorder [Fatal]
  - Pneumonia [Fatal]
  - Unresponsive to stimuli [Unknown]
  - Pulmonary oedema [Unknown]
  - Overdose [Fatal]
  - Lower respiratory tract infection [Fatal]

NARRATIVE: CASE EVENT DATE: 2016
